FAERS Safety Report 17197696 (Version 1)
Quarter: 2019Q4

REPORT INFORMATION
  Report Type: Spontaneous
  Country: US (occurrence: US)
  Receive Date: 20191224
  Receipt Date: 20191224
  Transmission Date: 20200122
  Serious: Yes (Death, Hospitalization)
  Sender: FDA-Public Use
  Company Number: US-TEVA-2019-US-1157557

PATIENT
  Age: 79 Year
  Sex: Female

DRUGS (1)
  1. METHOTREXATE. [Suspect]
     Active Substance: METHOTREXATE
     Dosage: ACCIDENTALLY TOOK 6 TABLETS A DAY FOR 4 DAYS
     Route: 065

REACTIONS (14)
  - Inappropriate schedule of product administration [Fatal]
  - Somnolence [Unknown]
  - Asthenia [Unknown]
  - Dyspnoea [Unknown]
  - Vomiting [Unknown]
  - Lethargy [Unknown]
  - Diarrhoea [Unknown]
  - Skin exfoliation [Unknown]
  - Generalised oedema [Unknown]
  - Blister [Unknown]
  - Musculoskeletal disorder [Unknown]
  - Haemorrhage [Unknown]
  - Accidental overdose [Fatal]
  - Confusional state [Unknown]
